FAERS Safety Report 9492778 (Version 1)
Quarter: 2013Q3

REPORT INFORMATION
  Report Type: Spontaneous
  Country: JP (occurrence: JP)
  Receive Date: 20130830
  Receipt Date: 20130830
  Transmission Date: 20140515
  Serious: Yes (Other)
  Sender: FDA-Public Use
  Company Number: JP-ALLERGAN-1313136US

PATIENT
  Age: 50 Year
  Sex: Female

DRUGS (1)
  1. BOTOX [Suspect]
     Indication: HYPERHIDROSIS
     Dosage: 50 UNITS, BID
     Route: 023
     Dates: start: 20130816, end: 20130816

REACTIONS (3)
  - Face oedema [Not Recovered/Not Resolved]
  - Urticaria [Not Recovered/Not Resolved]
  - Dyspnoea [Recovered/Resolved]
